FAERS Safety Report 7634556-2 (Version None)
Quarter: 2011Q3

REPORT INFORMATION
  Report Type: 
  Country: None (occurrence: None)
  Receive Date: 20110725
  Receipt Date: 20110720
  Transmission Date: 20111222
  Serious: Yes (Death)
  Sender: FDA-Public Use
  Company Number: FR-PFIZER INC-2011164509

PATIENT
  Age: 18 Year
  Sex: Female

DRUGS (3)
  1. XANAX [Suspect]
     Dosage: 0.5 MG, 3X/DAY
     Route: 048
     Dates: start: 20090901, end: 20100201
  2. PANDEMRIX [Suspect]
     Indication: INFLUENZA IMMUNISATION
     Dosage: UNK
     Route: 030
     Dates: start: 20091215, end: 20091215
  3. RISPERDAL [Suspect]
     Dosage: 1 DF, EVERY 2 WEEKS
     Route: 030
     Dates: start: 20090901, end: 20100201

REACTIONS (1)
  - ANAPLASTIC LARGE CELL LYMPHOMA T- AND NULL-CELL TYPES [None]
